FAERS Safety Report 5239709-9 (Version None)
Quarter: 2007Q1

REPORT INFORMATION
  Report Type: 
  Country: None (occurrence: None)
  Receive Date: 20070214
  Receipt Date: 20070214
  Transmission Date: 20070707
  Serious: Yes (Hospitalization)
  Sender: FDA-Public Use
  Company Number: None

PATIENT
  Age: 57 Year
  Sex: Male

DRUGS (11)
  1. HUMULIN 70/30 [Suspect]
     Indication: DIABETES MELLITUS
     Dosage: 100 UNITS QAM, 75 UNITS QPM
     Dates: start: 20060912, end: 20060928
  2. INSULIN ASPART [Suspect]
     Indication: DIABETES MELLITUS
     Dosage: 10UNITS SQ TID PRN
     Route: 058
     Dates: start: 20060912, end: 20060928
  3. ACCU-CHEK COMFORT CV-GLUCOSE-TEST STRIP [Concomitant]
  4. CLONIDINE HCL [Concomitant]
  5. DIVALPROEX SODIUM [Concomitant]
  6. FUROSEMIDE [Concomitant]
  7. INSULIN ASPART [Concomitant]
  8. INSULIN NOVOLIN 70/30 -NPH REG [Concomitant]
  9. LACTIC ACID 12% LOTION [Concomitant]
  10. LISINOPRIL [Concomitant]
  11. METOLAZONE [Concomitant]

REACTIONS (2)
  - HYPOGLYCAEMIA [None]
  - MENTAL STATUS CHANGES [None]
